FAERS Safety Report 10047952 (Version 2)
Quarter: 2014Q2

REPORT INFORMATION
  Report Type: Spontaneous
  Country: US (occurrence: None)
  Receive Date: 20140327
  Receipt Date: 20140414
  Transmission Date: 20141212
  Serious: Yes (Other)
  Sender: FDA-Public Use
  Company Number: 2014-US-003237

PATIENT
  Age: 40 Year
  Sex: Female

DRUGS (2)
  1. XYREM [Suspect]
     Indication: NARCOLEPSY
     Route: 048
     Dates: start: 200610
  2. XYREM [Suspect]
     Indication: APNOEA
     Route: 048
     Dates: start: 200610

REACTIONS (4)
  - Sleep apnoea syndrome [None]
  - Asthma [None]
  - Gastrooesophageal reflux disease [None]
  - Off label use [None]
